FAERS Safety Report 15932752 (Version 1)
Quarter: 2019Q1

REPORT INFORMATION
  Report Type: Spontaneous
  Country: FR (occurrence: FR)
  Receive Date: 20190207
  Receipt Date: 20190207
  Transmission Date: 20190417
  Serious: Yes (Other)
  Sender: FDA-Public Use
  Company Number: FR-AMREGENT-20190184

PATIENT
  Age: 85 Year
  Sex: Male
  Weight: 86.5 kg

DRUGS (1)
  1. VENOFER [Suspect]
     Active Substance: IRON SUCROSE
     Dosage: 100 MG/5 ML (1 DOSAGE FORM)
     Route: 042
     Dates: start: 20181220, end: 20181220

REACTIONS (3)
  - Malaise [Unknown]
  - Feeling hot [Unknown]
  - Loss of consciousness [Unknown]

NARRATIVE: CASE EVENT DATE: 20181220
